FAERS Safety Report 15338597 (Version 1)
Quarter: 2018Q3

REPORT INFORMATION
  Report Type: Other
  Country: US (occurrence: US)
  Receive Date: 20180831
  Receipt Date: 20180831
  Transmission Date: 20181010
  Serious: No
  Sender: FDA-Public Use
  Company Number: US-INTERCEPT-PMOCA2018000997

PATIENT

DRUGS (13)
  1. NITROGLYCERIN. [Concomitant]
     Active Substance: NITROGLYCERIN
  2. CARVEDILOL. [Concomitant]
     Active Substance: CARVEDILOL
  3. ESTRADIOL. [Concomitant]
     Active Substance: ESTRADIOL
  4. ATORVASTATIN [Concomitant]
     Active Substance: ATORVASTATIN
  5. ASPIRIN. [Concomitant]
     Active Substance: ASPIRIN
  6. URSODIOL. [Concomitant]
     Active Substance: URSODIOL
     Dosage: 900 MG, QD
  7. DORZOLAMIDE [Concomitant]
     Active Substance: DORZOLAMIDE
  8. LISINOPRIL. [Concomitant]
     Active Substance: LISINOPRIL
  9. OCALIVA [Suspect]
     Active Substance: OBETICHOLIC ACID
     Indication: PRIMARY BILIARY CHOLANGITIS
     Dosage: 5 MG, QD
     Route: 048
     Dates: start: 20180628
  10. TRAMADOL. [Suspect]
     Active Substance: TRAMADOL
  11. LEVOTHYROXINE. [Concomitant]
     Active Substance: LEVOTHYROXINE
  12. URSODIOL. [Concomitant]
     Active Substance: URSODIOL
     Dosage: 600 MG, QD
  13. LUMIGAN [Concomitant]
     Active Substance: BIMATOPROST

REACTIONS (4)
  - Fatigue [Recovering/Resolving]
  - Restless legs syndrome [Not Recovered/Not Resolved]
  - Hypersomnia [Recovered/Resolved]
  - Pruritus [Recovering/Resolving]

NARRATIVE: CASE EVENT DATE: 2018
